FAERS Safety Report 21626128 (Version 1)
Quarter: 2022Q4

REPORT INFORMATION
  Report Type: Report from Study
  Country: US (occurrence: US)
  Receive Date: 20221122
  Receipt Date: 20221122
  Transmission Date: 20230113
  Serious: Yes (Other)
  Sender: FDA-Public Use
  Company Number: US-PAREXEL-2021-KAM-US003507

PATIENT
  Age: 54 Year
  Sex: Female
  Weight: 135 kg

DRUGS (23)
  1. GLASSIA [Suspect]
     Active Substance: .ALPHA.1-PROTEINASE INHIBITOR HUMAN
     Indication: Asymptomatic gene carrier
     Dosage: 60 MILLIGRAM/KILOGRAM
     Route: 042
     Dates: start: 20161013
  2. GLASSIA [Suspect]
     Active Substance: .ALPHA.1-PROTEINASE INHIBITOR HUMAN
     Indication: Asymptomatic gene carrier
     Dosage: 60 MILLIGRAM/KILOGRAM
     Route: 042
     Dates: start: 20161013
  3. GLASSIA [Suspect]
     Active Substance: .ALPHA.1-PROTEINASE INHIBITOR HUMAN
     Indication: Alpha-1 antitrypsin deficiency
     Dosage: 8000 MILLIGRAM, 1/WEEK
     Route: 042
     Dates: start: 20200622
  4. GLASSIA [Suspect]
     Active Substance: .ALPHA.1-PROTEINASE INHIBITOR HUMAN
     Indication: Alpha-1 antitrypsin deficiency
     Dosage: 8000 MILLIGRAM, 1/WEEK
     Route: 042
     Dates: start: 20200622
  5. DIPHENHYDRAMINE [Concomitant]
     Active Substance: DIPHENHYDRAMINE
     Dosage: UNKNOWN
     Route: 065
  6. VITAMIN D3 [Concomitant]
     Active Substance: CHOLECALCIFEROL
     Dosage: UNKNOWN
     Route: 065
  7. SYMBICORT [Concomitant]
     Active Substance: BUDESONIDE\FORMOTEROL FUMARATE DIHYDRATE
     Dosage: UNKNOWN
     Route: 065
  8. SODIUM CHLORIDE [Concomitant]
     Active Substance: SODIUM CHLORIDE
     Dosage: UNKNOWN
     Route: 065
  9. EPINEPHRINE [Concomitant]
     Active Substance: EPINEPHRINE
     Dosage: UNKNOWN
     Route: 065
  10. SPIRIVA [Concomitant]
     Active Substance: TIOTROPIUM BROMIDE MONOHYDRATE
     Dosage: UNKNOWN
     Route: 065
  11. FLUBLOK QUADRIVALENT NOS [Concomitant]
     Active Substance: INFLUENZA VIRUS VACCINE
     Route: 065
  12. SYNTHROID [Concomitant]
     Active Substance: LEVOTHYROXINE SODIUM
     Dosage: UNKNOWN
     Route: 065
  13. OXYGEN [Concomitant]
     Active Substance: OXYGEN
     Dosage: UNKNOWN
     Route: 065
  14. LISINOPRIL [Concomitant]
     Active Substance: LISINOPRIL
     Dosage: UNKNOWN
     Route: 065
  15. LASIX [Concomitant]
     Active Substance: FUROSEMIDE
     Dosage: UNKNOWN
     Route: 065
  16. Lmx [Concomitant]
     Dosage: UNKNOWN
     Route: 065
  17. EPIPEN [Concomitant]
     Active Substance: EPINEPHRINE
     Dosage: UNKNOWN
     Route: 065
  18. VITAMIN C [Concomitant]
     Active Substance: ASCORBIC ACID
     Dosage: UNKNOWN
     Route: 065
  19. PREDNISONE [Concomitant]
     Active Substance: PREDNISONE
     Dosage: UNKNOWN
     Route: 065
  20. CRANBERRY [Concomitant]
     Active Substance: CRANBERRY
     Dosage: UNKNOWN
     Route: 065
  21. PRAVASTATIN SODIUM [Concomitant]
     Active Substance: PRAVASTATIN SODIUM
  22. PROAIR HFA [Concomitant]
     Active Substance: ALBUTEROL SULFATE
  23. PFIZER-BIONTECH COVID-19 VACCINE [Concomitant]
     Active Substance: TOZINAMERAN

REACTIONS (5)
  - Cataract [Unknown]
  - Allergy to chemicals [Unknown]
  - Dyspnoea [Unknown]
  - Off label use [Unknown]
  - Multiple allergies [Unknown]

NARRATIVE: CASE EVENT DATE: 20161013
